FAERS Safety Report 23651044 (Version 1)
Quarter: 2024Q1

REPORT INFORMATION
  Report Type: Spontaneous
  Country: US (occurrence: US)
  Receive Date: 20240320
  Receipt Date: 20240320
  Transmission Date: 20240409
  Serious: No
  Sender: FDA-Public Use
  Company Number: US-E2BLSMVVAL-SPO/USA/24/0004212

PATIENT

DRUGS (1)
  1. HABITROL [Suspect]
     Active Substance: NICOTINE
     Indication: Smoking cessation therapy

REACTIONS (1)
  - Drug ineffective [Unknown]
